FAERS Safety Report 23833961 (Version 2)
Quarter: 2024Q2

REPORT INFORMATION
  Report Type: Spontaneous
  Country: JP (occurrence: JP)
  Receive Date: 20240509
  Receipt Date: 20240515
  Transmission Date: 20240716
  Serious: Yes (Other)
  Sender: FDA-Public Use
  Company Number: JP-GENMAB-2024-01490

PATIENT
  Age: 69 Year
  Sex: Male

DRUGS (4)
  1. EPKINLY [Suspect]
     Active Substance: EPCORITAMAB-BYSP
     Indication: Diffuse large B-cell lymphoma
     Dosage: 0.16 MILLIGRAM, SINGLE
     Route: 058
     Dates: start: 20240116, end: 20240116
  2. EPKINLY [Suspect]
     Active Substance: EPCORITAMAB-BYSP
     Dosage: UNK
     Route: 065
     Dates: start: 2024, end: 2024
  3. CEFEPIME HYDROCHLORIDE [Concomitant]
     Active Substance: CEFEPIME HYDROCHLORIDE
     Dosage: UNK,  C1, AFTER THE THIRD ADMINISTRATION BEFORE STARTING EPKINLY SUBCUTANEOUS INJECTION (EPCORITAMAB
     Dates: end: 2024
  4. CEFEPIME HYDROCHLORIDE [Concomitant]
     Active Substance: CEFEPIME HYDROCHLORIDE
     Dosage: UNK,  C2, AFTER THE SECOND ADMINISTRATION TO THE THIRD ADMINISTRATION OF EPKINLY SUBCUTANEOUS INJECT
     Dates: start: 2024, end: 2024

REACTIONS (9)
  - Diffuse large B-cell lymphoma [Unknown]
  - Ventricular tachycardia [Unknown]
  - Ventricular tachycardia [Unknown]
  - Cytokine release syndrome [Recovered/Resolved]
  - Abdominal pain [Recovered/Resolved]
  - Supraventricular tachycardia [Unknown]
  - Supraventricular tachycardia [Unknown]
  - Infection [Unknown]
  - Pyrexia [Recovered/Resolved]

NARRATIVE: CASE EVENT DATE: 20240101
